FAERS Safety Report 24426500 (Version 1)
Quarter: 2024Q4

REPORT INFORMATION
  Report Type: Spontaneous
  Country: US (occurrence: US)
  Receive Date: 20241011
  Receipt Date: 20241011
  Transmission Date: 20250115
  Serious: Yes (Hospitalization, Other)
  Sender: RANBAXY
  Company Number: US-SUN PHARMACEUTICAL INDUSTRIES LTD-2024R1-472743

PATIENT
  Age: 60 Year
  Sex: Female

DRUGS (2)
  1. KETOCONAZOLE [Suspect]
     Active Substance: KETOCONAZOLE
     Indication: Hyperplasia adrenal
     Dosage: UNK
     Route: 065
  2. SPIRONOLACTONE [Suspect]
     Active Substance: SPIRONOLACTONE
     Indication: Hyperplasia adrenal
     Dosage: UNK
     Route: 065

REACTIONS (8)
  - Disease progression [Unknown]
  - Condition aggravated [Unknown]
  - Somnolence [Unknown]
  - Pancytopenia [Unknown]
  - Thrombocytopenia [Unknown]
  - Bacteraemia [Unknown]
  - Encephalopathy [Unknown]
  - Pneumonia [Unknown]
